FAERS Safety Report 8550317-4 (Version None)
Quarter: 2012Q3

REPORT INFORMATION
  Report Type: 
  Country: None (occurrence: None)
  Receive Date: 20120730
  Receipt Date: 20120724
  Transmission Date: 20120928
  Serious: Yes (Hospitalization, Other)
  Sender: FDA-Public Use
  Company Number: PHHY2012DE055993

PATIENT
  Sex: Female
  Weight: 62 kg

DRUGS (2)
  1. GILENYA [Suspect]
     Indication: MULTIPLE SCLEROSIS
     Dosage: 0.5 MG, QD
     Route: 048
     Dates: start: 20120628
  2. LIORESAL [Concomitant]
     Indication: MUSCLE SPASTICITY
     Dosage: 10 MG, QD
     Route: 048
     Dates: start: 20090101

REACTIONS (5)
  - SUPRAVENTRICULAR EXTRASYSTOLES [None]
  - HEART RATE INCREASED [None]
  - ATRIOVENTRICULAR BLOCK SECOND DEGREE [None]
  - ATRIOVENTRICULAR BLOCK FIRST DEGREE [None]
  - HEART RATE DECREASED [None]
